FAERS Safety Report 7950661-5 (Version None)
Quarter: 2011Q4

REPORT INFORMATION
  Report Type: 
  Country: None (occurrence: None)
  Receive Date: 20111201
  Receipt Date: 20111121
  Transmission Date: 20120403
  Serious: Yes (Hospitalization)
  Sender: FDA-Public Use
  Company Number: IT-ACCORD-011457

PATIENT
  Age: 44 Year
  Sex: Male

DRUGS (16)
  1. DOXORUBICIN HCL [Suspect]
     Indication: BURKITT'S LYMPHOMA
     Dosage: DAY 1
     Route: 042
  2. CYTARABINE [Suspect]
     Indication: BURKITT'S LYMPHOMA
     Dosage: 2G/M2 I.V. AND 70MG I.T.
  3. LOPINAVIR [Concomitant]
     Indication: ANTIVIRAL PROPHYLAXIS
  4. RITUXIMAB [Suspect]
     Indication: BURKITT'S LYMPHOMA
     Route: 042
  5. MESNA [Suspect]
     Indication: BURKITT'S LYMPHOMA
     Route: 042
  6. IFOSFAMIDE [Suspect]
     Indication: BURKITT'S LYMPHOMA
     Route: 042
  7. TENOFOVIR DISOPROXIL FUMARATE [Concomitant]
     Indication: ANTIVIRAL PROPHYLAXIS
  8. METHOTREXATE [Suspect]
     Indication: BURKITT'S LYMPHOMA
     Route: 042
  9. CYCLOPHOSPHAMIDE [Suspect]
     Indication: BURKITT'S LYMPHOMA
     Route: 042
  10. NEUPOGEN [Suspect]
     Indication: BURKITT'S LYMPHOMA
     Route: 058
  11. TRIMETHOPRIM + SULFAMETHOXAZOLE [Concomitant]
  12. LEUCOVORIN CALCIUM [Concomitant]
     Indication: BURKITT'S LYMPHOMA
     Route: 042
  13. ETOPOSIDE [Suspect]
     Indication: BURKITT'S LYMPHOMA
     Dosage: DAYS 1-5
     Route: 042
  14. VINCRISTINE [Suspect]
     Indication: BURKITT'S LYMPHOMA
     Dosage: DAYS 1, 8 AND 15
     Route: 042
  15. AZITHROMYCIN [Concomitant]
  16. EMTRICITABINE [Concomitant]
     Indication: ANTIVIRAL PROPHYLAXIS

REACTIONS (5)
  - NEOPLASM RECURRENCE [None]
  - CEREBRAL TOXOPLASMOSIS [None]
  - URINARY RETENTION [None]
  - BURKITT'S LYMPHOMA [None]
  - OFF LABEL USE [None]
